FAERS Safety Report 25141984 (Version 4)
Quarter: 2025Q2

REPORT INFORMATION
  Report Type: Spontaneous
  Country: US (occurrence: US)
  Receive Date: 20250331
  Receipt Date: 20250528
  Transmission Date: 20250717
  Serious: No
  Sender: PFIZER
  Company Number: US-PFIZER INC-202500067421

PATIENT
  Age: 39 Year
  Sex: Female

DRUGS (1)
  1. TIVDAK [Suspect]
     Active Substance: TISOTUMAB VEDOTIN-TFTV
     Dosage: 161 MG, EVERY 3 WEEKS

REACTIONS (2)
  - Weight decreased [Recovering/Resolving]
  - Weight increased [Unknown]
